FAERS Safety Report 11175791 (Version 1)
Quarter: 2015Q2

REPORT INFORMATION
  Report Type: Spontaneous
  Country: CN (occurrence: CN)
  Receive Date: 20150609
  Receipt Date: 20150609
  Transmission Date: 20150821
  Serious: Yes (Hospitalization)
  Sender: FDA-Public Use
  Company Number: CN-ASTRAZENECA-2015SE38651

PATIENT
  Age: 58 Year
  Sex: Female

DRUGS (5)
  1. CRESTOR [Suspect]
     Active Substance: ROSUVASTATIN CALCIUM
     Route: 048
  2. PLAVIX [Concomitant]
     Active Substance: CLOPIDOGREL BISULFATE
  3. BYASPIRIN [Concomitant]
  4. IMDUR [Suspect]
     Active Substance: ISOSORBIDE MONONITRATE
     Route: 048
     Dates: start: 20150320, end: 20150421
  5. BETALOC [Suspect]
     Active Substance: METOPROLOL TARTRATE
     Route: 048

REACTIONS (2)
  - Vertigo [Recovered/Resolved]
  - Confusional state [Recovered/Resolved]

NARRATIVE: CASE EVENT DATE: 20150421
